FAERS Safety Report 23852874 (Version 3)
Quarter: 2024Q4

REPORT INFORMATION
  Report Type: Spontaneous
  Country: DE (occurrence: DE)
  Receive Date: 20240514
  Receipt Date: 20241129
  Transmission Date: 20250114
  Serious: Yes (Other)
  Sender: ROCHE
  Company Number: DE-ROCHE-3558062

PATIENT
  Age: 31 Year
  Sex: Female
  Weight: 75 kg

DRUGS (3)
  1. OCREVUS [Suspect]
     Active Substance: OCRELIZUMAB
     Indication: Relapsing-remitting multiple sclerosis
     Route: 065
     Dates: start: 20230405, end: 20230409
  2. OCREVUS [Suspect]
     Active Substance: OCRELIZUMAB
     Indication: Neuromyelitis optica spectrum disorder
  3. LEVOTHYROXINE [Concomitant]
     Active Substance: LEVOTHYROXINE
     Indication: Hypothyroidism

REACTIONS (3)
  - Multiple sclerosis relapse [Recovered/Resolved with Sequelae]
  - Monoparesis [Recovered/Resolved with Sequelae]
  - Off label use [Unknown]

NARRATIVE: CASE EVENT DATE: 20231101
